FAERS Safety Report 6802139-X (Version None)
Quarter: 2010Q2

REPORT INFORMATION
  Report Type: 
  Country: None (occurrence: None)
  Receive Date: 20100629
  Receipt Date: 20080515
  Transmission Date: 20101027
  Serious: No
  Sender: FDA-Public Use
  Company Number: US-PFIZER INC-2007071438

PATIENT
  Sex: Male
  Weight: 89.1 kg

DRUGS (6)
  1. VIAGRA [Suspect]
     Indication: ERECTILE DYSFUNCTION
     Dates: start: 20070824
  2. METOPROLOL [Concomitant]
  3. ACETYLSALICYLIC ACID [Concomitant]
  4. CHOLESTYRAMINE [Concomitant]
  5. VYTORIN [Concomitant]
  6. NITROGLYCERIN [Concomitant]

REACTIONS (3)
  - DRUG INEFFECTIVE [None]
  - FLUSHING [None]
  - TENSION HEADACHE [None]
